FAERS Safety Report 5852329-8 (Version None)
Quarter: 2008Q3

REPORT INFORMATION
  Report Type: 
  Country: None (occurrence: None)
  Receive Date: 20080821
  Receipt Date: 20080819
  Transmission Date: 20090109
  Serious: Yes (Other)
  Sender: FDA-Public Use
  Company Number: PHHY2008BR17873

PATIENT
  Age: 35 Year
  Sex: Female
  Weight: 120 kg

DRUGS (5)
  1. TOFRANIL [Suspect]
     Indication: BIPOLAR DISORDER
     Dosage: 75 MG, BID
     Route: 048
  2. TOFRANIL [Suspect]
     Dosage: 75 MG, BID
     Route: 048
  3. TEGRETOL [Concomitant]
     Indication: BIPOLAR DISORDER
     Dosage: 400 MG, BID
     Route: 048
  4. CARBOLITIUM CR [Concomitant]
     Indication: BIPOLAR DISORDER
     Dosage: 450 MG, BID
  5. RISPERIDONE [Concomitant]
     Indication: BIPOLAR DISORDER
     Dosage: 4 MG, QD (BEDTIME)
     Route: 048

REACTIONS (5)
  - DEPRESSION [None]
  - GASTRIC LAVAGE [None]
  - MULTIPLE DRUG OVERDOSE INTENTIONAL [None]
  - SOMNOLENCE [None]
  - SUICIDE ATTEMPT [None]
